FAERS Safety Report 17125841 (Version 1)
Quarter: 2019Q4

REPORT INFORMATION
  Report Type: Report from Study
  Country: None (occurrence: US)
  Receive Date: 20191208
  Receipt Date: 20191208
  Transmission Date: 20200122
  Serious: Yes (Other)
  Sender: FDA-Public Use
  Company Number: US-ABBVIE-19K-163-2924324-00

PATIENT
  Sex: Female

DRUGS (2)
  1. HUMIRA [Suspect]
     Active Substance: ADALIMUMAB
     Indication: CROHN^S DISEASE
     Dosage: CITRATE FREE
     Route: 058
  2. VITAMIN B12 [Concomitant]
     Active Substance: CYANOCOBALAMIN
     Indication: PRODUCT USED FOR UNKNOWN INDICATION
     Dosage: SHOT

REACTIONS (8)
  - Nasal septum deviation [Recovering/Resolving]
  - Pain [Recovering/Resolving]
  - Sneezing [Recovering/Resolving]
  - Adhesion [Recovering/Resolving]
  - Restless legs syndrome [Recovering/Resolving]
  - Middle ear effusion [Recovering/Resolving]
  - Dyspepsia [Recovering/Resolving]
  - Nephrolithiasis [Recovering/Resolving]

NARRATIVE: CASE EVENT DATE: 2014
